FAERS Safety Report 6967977-1 (Version None)
Quarter: 2010Q3

REPORT INFORMATION
  Report Type: 
  Country: None (occurrence: None)
  Receive Date: 20100907
  Receipt Date: 20100827
  Transmission Date: 20110219
  Serious: Yes (Death)
  Sender: FDA-Public Use
  Company Number: A0837905A

PATIENT
  Age: 89 Year
  Sex: Female

DRUGS (2)
  1. AVANDIA [Suspect]
     Route: 065
     Dates: start: 20061229
  2. AVANDARYL [Suspect]
     Route: 048
     Dates: start: 20060101, end: 20070101

REACTIONS (2)
  - ASPIRATION [None]
  - CEREBROVASCULAR ACCIDENT [None]
